FAERS Safety Report 8163118-6 (Version None)
Quarter: 2012Q1

REPORT INFORMATION
  Report Type: 
  Country: None (occurrence: None)
  Receive Date: 20120221
  Receipt Date: 20120216
  Transmission Date: 20120608
  Serious: Yes (Hospitalization)
  Sender: FDA-Public Use
  Company Number: B0781988A

PATIENT
  Age: 17 Year
  Sex: Female

DRUGS (1)
  1. VENTOLIN [Suspect]
     Indication: PRODUCT USED FOR UNKNOWN INDICATION
     Dosage: AS REQUIRED

REACTIONS (7)
  - METABOLIC ACIDOSIS [None]
  - LACTIC ACIDOSIS [None]
  - HYPOKALAEMIA [None]
  - OVERDOSE [None]
  - ASTHMA [None]
  - CONDITION AGGRAVATED [None]
  - SINUS TACHYCARDIA [None]
